FAERS Safety Report 5211425-9 (Version None)
Quarter: 2007Q1

REPORT INFORMATION
  Report Type: 
  Country: None (occurrence: None)
  Receive Date: 20070111
  Receipt Date: 20070108
  Transmission Date: 20070707
  Serious: Yes (Hospitalization, Other)
  Sender: FDA-Public Use
  Company Number: HQWYE618629JUL04

PATIENT
  Age: 56 Year
  Sex: Female
  Weight: 50.85 kg

DRUGS (1)
  1. PREMPRO [Suspect]
     Indication: HORMONE REPLACEMENT THERAPY
     Dates: end: 20010901

REACTIONS (8)
  - BREAST CANCER RECURRENT [None]
  - INTERVERTEBRAL DISC DEGENERATION [None]
  - INTERVERTEBRAL DISC PROTRUSION [None]
  - OESTROGEN RECEPTOR ASSAY POSITIVE [None]
  - OVARIAN CYST [None]
  - PROGESTERONE RECEPTOR ASSAY POSITIVE [None]
  - SCOLIOSIS [None]
  - UTERINE POLYP [None]
